FAERS Safety Report 9304912 (Version 2)
Quarter: 2013Q3

REPORT INFORMATION
  Report Type: Spontaneous
  Country: US (occurrence: None)
  Receive Date: 20130521
  Receipt Date: 20130703
  Transmission Date: 20140515
  Serious: Yes (Hospitalization, Other)
  Sender: FDA-Public Use
  Company Number: 2013SGN00264

PATIENT
  Age: 28 Year
  Sex: Male
  Weight: 93.9 kg

DRUGS (4)
  1. BRENTUXIMAB VEDOTIN [Suspect]
     Indication: HODGKIN^S DISEASE RECURRENT
     Dosage: 111 MG, QCYCLE
     Route: 042
     Dates: start: 20130109, end: 20130424
  2. BRENTUXIMAB VEDOTIN [Suspect]
     Indication: HODGKIN^S DISEASE REFRACTORY
     Dosage: 111 MG, QCYCLE
     Route: 042
     Dates: start: 20130109, end: 20130424
  3. BENDAMUSTINE (BENDAMUSTINE) (BENDAMUSTINE) [Suspect]
     Indication: HODGKIN^S DISEASE RECURRENT
     Dosage: 149 MG, QCYCLE
     Route: 042
     Dates: start: 20130109, end: 20130425
  4. BENDAMUSTINE (BENDAMUSTINE) (BENDAMUSTINE) [Suspect]
     Indication: HODGKIN^S DISEASE REFRACTORY
     Dosage: 149 MG, QCYCLE
     Route: 042
     Dates: start: 20130109, end: 20130425

REACTIONS (5)
  - Cytomegalovirus infection [None]
  - Dyspnoea exertional [None]
  - Sepsis [None]
  - Cough [None]
  - Diarrhoea [None]
